FAERS Safety Report 10768364 (Version 3)
Quarter: 2015Q1

REPORT INFORMATION
  Report Type: Spontaneous
  Country: FR (occurrence: FR)
  Receive Date: 20150206
  Receipt Date: 20150218
  Transmission Date: 20150721
  Serious: Yes (Other)
  Sender: FDA-Public Use
  Company Number: FR-ROCHE-1532696

PATIENT
  Age: 57 Year
  Sex: Female

DRUGS (5)
  1. HERCEPTIN [Suspect]
     Active Substance: TRASTUZUMAB
     Route: 042
     Dates: start: 20141023
  2. HERCEPTIN [Suspect]
     Active Substance: TRASTUZUMAB
     Indication: BREAST CANCER
     Dosage: LOADING DOSE?FIRST CYCLE
     Route: 042
     Dates: start: 20140822
  3. HERCEPTIN [Suspect]
     Active Substance: TRASTUZUMAB
     Dosage: MAINTENANCE DOSE?SECOND CYCLE
     Route: 042
     Dates: start: 20140919
  4. TAXOTERE [Concomitant]
     Active Substance: DOCETAXEL
  5. HERCEPTIN [Suspect]
     Active Substance: TRASTUZUMAB
     Dosage: THIRD CYCLE
     Route: 042
     Dates: start: 20141003

REACTIONS (1)
  - Keratoacanthoma [Recovered/Resolved]
